FAERS Safety Report 9056761 (Version 5)
Quarter: 2013Q4

REPORT INFORMATION
  Report Type: Spontaneous
  Country: US (occurrence: US)
  Receive Date: 20130201
  Receipt Date: 20131031
  Transmission Date: 20140711
  Serious: Yes (Other)
  Sender: FDA-Public Use
  Company Number: US-PFIZER INC-2013033693

PATIENT
  Age: 86 Year
  Sex: Female

DRUGS (3)
  1. XALATAN [Suspect]
     Dosage: UNK
  2. METOPROLOL TARTRATE [Concomitant]
     Indication: HYPERTENSION
     Dosage: UNK
  3. WARFARIN [Concomitant]
     Indication: BLOOD DISORDER
     Dosage: 7.5 MG, UNK

REACTIONS (9)
  - Cardiac disorder [Unknown]
  - Visual acuity reduced [Unknown]
  - Eye disorder [Unknown]
  - Arthritis [Unknown]
  - Fall [Unknown]
  - Pain in extremity [Unknown]
  - Gait disturbance [Unknown]
  - Hypersensitivity [Not Recovered/Not Resolved]
  - Rhinorrhoea [Unknown]
